FAERS Safety Report 24071041 (Version 1)
Quarter: 2024Q3

REPORT INFORMATION
  Report Type: Report from Study
  Country: CN (occurrence: CN)
  Receive Date: 20240710
  Receipt Date: 20240710
  Transmission Date: 20241017
  Serious: No
  Sender: ROCHE
  Company Number: CN-ROCHE-3079489

PATIENT
  Age: 56 Year
  Sex: Female
  Weight: 59.0 kg

DRUGS (9)
  1. ALECTINIB [Suspect]
     Active Substance: ALECTINIB
     Indication: Non-small cell lung cancer
     Route: 048
     Dates: start: 20211010
  2. ALECTINIB [Suspect]
     Active Substance: ALECTINIB
     Route: 048
     Dates: start: 20211105
  3. VITAMIN B6 [Concomitant]
     Active Substance: PYRIDOXINE HYDROCHLORIDE
     Route: 042
     Dates: start: 20220220, end: 20220220
  4. DENOSUMAB [Concomitant]
     Active Substance: DENOSUMAB
     Indication: Bone operation
     Route: 058
     Dates: start: 20220216, end: 20220216
  5. DENOSUMAB [Concomitant]
     Active Substance: DENOSUMAB
     Route: 058
     Dates: start: 20220413, end: 20220413
  6. CALCITRIOL [Concomitant]
     Active Substance: CALCITRIOL
     Indication: Mineral supplementation
     Dosage: 5 OTHER
     Route: 048
     Dates: start: 20220217, end: 20220217
  7. VITAMIN C [Concomitant]
     Active Substance: ASCORBIC ACID
     Route: 042
     Dates: start: 20220220, end: 20220220
  8. CALCIUM CARBONATE\CHOLECALCIFEROL [Concomitant]
     Active Substance: CALCIUM CARBONATE\CHOLECALCIFEROL
     Dosage: 1 OTHER
     Route: 048
     Dates: start: 20211224
  9. SOPHORA FLAVESCENS [Concomitant]
     Route: 042
     Dates: start: 20220220, end: 20220220

REACTIONS (1)
  - Urinary tract infection [Recovered/Resolved]

NARRATIVE: CASE EVENT DATE: 20220217
